FAERS Safety Report 6081424-6 (Version None)
Quarter: 2009Q1

REPORT INFORMATION
  Report Type: 
  Country: None (occurrence: None)
  Receive Date: 20090218
  Receipt Date: 20090210
  Transmission Date: 20090719
  Serious: Yes (Hospitalization, Other)
  Sender: FDA-Public Use
  Company Number: PHHO2008FR10243

PATIENT
  Sex: Female
  Weight: 76 kg

DRUGS (9)
  1. TASIGNA [Suspect]
     Indication: GASTROINTESTINAL STROMAL TUMOUR
     Dosage: 800 MG
     Route: 048
     Dates: start: 20080131, end: 20080716
  2. SUNITINIB MALATE [Suspect]
  3. NEXAVAR [Suspect]
     Indication: GASTROINTESTINAL STROMAL TUMOUR
     Dosage: 800 MG
     Route: 048
     Dates: start: 20080727, end: 20080808
  4. NUREFLEX [Concomitant]
     Indication: PAIN
  5. LEVOTHYROX [Concomitant]
     Indication: HYPOTHYROIDISM
     Dosage: 25 UG DAILY
     Dates: start: 20080725, end: 20080804
  6. LEVOTHYROX [Concomitant]
     Dosage: 50 UG DAILY
     Dates: start: 20080805, end: 20081023
  7. LEVOTHYROX [Concomitant]
     Dosage: 75 UG DAILY
     Dates: start: 20081024
  8. LOXEN [Concomitant]
  9. NULYTELY [Concomitant]
     Indication: CONSTIPATION

REACTIONS (8)
  - ASTHENIA [None]
  - DIZZINESS [None]
  - HYPOTHYROIDISM [None]
  - PSYCHOMOTOR RETARDATION [None]
  - SOMNOLENCE [None]
  - THYROXINE DECREASED [None]
  - TRI-IODOTHYRONINE DECREASED [None]
  - VERTIGO [None]
